FAERS Safety Report 6181165-0 (Version None)
Quarter: 2009Q2

REPORT INFORMATION
  Report Type: 
  Country: None (occurrence: None)
  Receive Date: 20090504
  Receipt Date: 20090504
  Transmission Date: 20091009
  Serious: No
  Sender: FDA-Public Use
  Company Number: None

PATIENT
  Age: 36 Year
  Sex: Male
  Weight: 133.8111 kg

DRUGS (1)
  1. LEVAQUIN [Suspect]
     Indication: SINUSITIS BACTERIAL
     Dosage: 5 PILLS ONCE DAILY PO
     Route: 048
     Dates: start: 20090427, end: 20090501

REACTIONS (4)
  - ARTHRALGIA [None]
  - MYALGIA [None]
  - NONSPECIFIC REACTION [None]
  - PAIN [None]
